FAERS Safety Report 9962888 (Version 1)
Quarter: 2014Q1

REPORT INFORMATION
  Report Type: Report from Study
  Country: US (occurrence: US)
  Receive Date: 20140305
  Receipt Date: 20140305
  Transmission Date: 20141002
  Serious: No
  Sender: FDA-Public Use
  Company Number: US-ABBVIE-13P-163-1111860-00

PATIENT
  Age: 52 Year
  Sex: Male
  Weight: 81.72 kg

DRUGS (4)
  1. HUMIRA [Suspect]
     Indication: PSORIATIC ARTHROPATHY
     Dates: start: 200601, end: 201108
  2. HUMIRA [Suspect]
     Dates: start: 20130618
  3. DEXILANT [Concomitant]
     Indication: GASTROOESOPHAGEAL REFLUX DISEASE
  4. DYMISTA [Concomitant]
     Indication: SEASONAL ALLERGY

REACTIONS (2)
  - White blood cell count decreased [Recovered/Resolved]
  - Arthralgia [Not Recovered/Not Resolved]
